FAERS Safety Report 17521903 (Version 1)
Quarter: 2020Q1

REPORT INFORMATION
  Report Type: Spontaneous
  Country: IT (occurrence: IT)
  Receive Date: 20200310
  Receipt Date: 20200310
  Transmission Date: 20200409
  Serious: Yes (Other)
  Sender: FDA-Public Use
  Company Number: NVSC2020IT066291

PATIENT

DRUGS (2)
  1. GEMCITABINE. [Suspect]
     Active Substance: GEMCITABINE
     Indication: PLEURAL MESOTHELIOMA MALIGNANT
     Dosage: 1000 MG/M2
     Route: 042
  2. IMATINIB. [Suspect]
     Active Substance: IMATINIB MESYLATE
     Indication: PLEURAL MESOTHELIOMA MALIGNANT
     Dosage: 400 MG
     Route: 048

REACTIONS (3)
  - Malignant neoplasm progression [Unknown]
  - Pleural mesothelioma malignant [Unknown]
  - Product use in unapproved indication [Unknown]
